FAERS Safety Report 25159118 (Version 6)
Quarter: 2025Q2

REPORT INFORMATION
  Report Type: Report from Study
  Country: US (occurrence: US)
  Receive Date: 20250404
  Receipt Date: 20250620
  Transmission Date: 20250717
  Serious: Yes (Other)
  Sender: SUNOVION
  Company Number: US-SUMITOMO PHARMA SWITZERLAND GMBH-2025SPA002973

PATIENT

DRUGS (2)
  1. ORGOVYX [Suspect]
     Active Substance: RELUGOLIX
     Indication: Prostate cancer
     Route: 048
  2. ORGOVYX [Suspect]
     Active Substance: RELUGOLIX
     Dosage: 120 MG, QD
     Route: 048
     Dates: start: 20250311

REACTIONS (20)
  - Neuropathy peripheral [Unknown]
  - Food craving [Unknown]
  - Heart rate increased [Unknown]
  - Seasonal allergy [Unknown]
  - Lipids increased [Unknown]
  - Nocturia [Unknown]
  - Plantar fasciitis [Unknown]
  - Dizziness [Unknown]
  - Weight increased [Unknown]
  - Night sweats [Unknown]
  - Hot flush [Unknown]
  - Insomnia [Unknown]
  - Feeling hot [Unknown]
  - Constipation [Unknown]
  - Diarrhoea [Unknown]
  - Blood cholesterol increased [Unknown]
  - Blood triglycerides increased [Unknown]
  - Fatigue [Unknown]
  - Asthenia [Unknown]
  - Musculoskeletal stiffness [Unknown]
